FAERS Safety Report 10430155 (Version 4)
Quarter: 2014Q3

REPORT INFORMATION
  Report Type: Spontaneous
  Country: US (occurrence: None)
  Receive Date: 20140902
  Receipt Date: 20140917
  Transmission Date: 20150326
  Serious: Yes (Death, Hospitalization, Other)
  Sender: FDA-Public Use
  Company Number: ADR-2014-01558

PATIENT
  Age: 41 Year
  Sex: Female

DRUGS (3)
  1. BACLOFEN. [Suspect]
     Active Substance: BACLOFEN
     Indication: MUSCLE SPASMS
  2. HYDROMORPHONE [Suspect]
     Active Substance: HYDROMORPHONE
     Indication: PAIN
  3. CLONIDINE. [Suspect]
     Active Substance: CLONIDINE

REACTIONS (6)
  - Withdrawal syndrome [None]
  - Aspiration [None]
  - Unresponsive to stimuli [None]
  - Myocardial infarction [None]
  - Cardio-respiratory arrest [None]
  - Hypoxia [None]

NARRATIVE: CASE EVENT DATE: 20140823
